FAERS Safety Report 5260859-5 (Version None)
Quarter: 2007Q1

REPORT INFORMATION
  Report Type: 
  Country: None (occurrence: None)
  Receive Date: 20070309
  Receipt Date: 20070301
  Transmission Date: 20070707
  Serious: Yes (Other)
  Sender: FDA-Public Use
  Company Number: GB-GLAXOSMITHKLINE-B0461224A

PATIENT
  Sex: Male

DRUGS (3)
  1. NYTOL [Suspect]
     Indication: DRUG USE FOR UNKNOWN INDICATION
  2. MIRTAZAPINE [Concomitant]
  3. AMISULPRIDE [Concomitant]

REACTIONS (1)
  - DRUG ABUSER [None]
